FAERS Safety Report 14688753 (Version 2)
Quarter: 2020Q3

REPORT INFORMATION
  Report Type: Report from Study
  Country: JP (occurrence: JP)
  Receive Date: 20180328
  Receipt Date: 20200908
  Transmission Date: 20201102
  Serious: Yes (Other)
  Sender: FDA-Public Use
  Company Number: JP-INCYTE CORPORATION-2015IN001699

PATIENT

DRUGS (3)
  1. JAKAVI [Suspect]
     Active Substance: RUXOLITINIB
     Dosage: 10 MG, BID
     Route: 048
     Dates: start: 20150330, end: 20150406
  2. JAKAVI [Suspect]
     Active Substance: RUXOLITINIB
     Dosage: 5 MG, BID
     Route: 048
     Dates: start: 20150407
  3. JAKAVI [Suspect]
     Active Substance: RUXOLITINIB
     Indication: PRIMARY MYELOFIBROSIS
     Dosage: 20 MG, BID
     Route: 048
     Dates: start: 20150317, end: 20150329

REACTIONS (1)
  - Hyperkalaemia [Not Recovered/Not Resolved]

NARRATIVE: CASE EVENT DATE: 20150323
